FAERS Safety Report 6516734-9 (Version None)
Quarter: 2009Q4

REPORT INFORMATION
  Report Type: 
  Country: None (occurrence: None)
  Receive Date: 20091223
  Receipt Date: 20091218
  Transmission Date: 20100525
  Serious: Yes (Life-Threatening)
  Sender: FDA-Public Use
  Company Number: GB-TEVA-218403ISR

PATIENT
  Age: 92 Year
  Sex: Female

DRUGS (4)
  1. BISOPROLOL FUMARATE [Suspect]
     Indication: HEART RATE
     Route: 048
     Dates: end: 20091124
  2. BISOPROLOL FUMARATE [Concomitant]
  3. DILTIAZEM [Suspect]
     Indication: HEART RATE
     Route: 048
     Dates: start: 20091124, end: 20091205
  4. PROPRANOLOL [Suspect]
     Indication: ANXIETY
     Route: 048
     Dates: start: 20091202, end: 20091205

REACTIONS (3)
  - ATRIOVENTRICULAR BLOCK COMPLETE [None]
  - DEPRESSED LEVEL OF CONSCIOUSNESS [None]
  - HYPOTENSION [None]
